FAERS Safety Report 12944598 (Version 1)
Quarter: 2016Q4

REPORT INFORMATION
  Report Type: Spontaneous
  Country: US (occurrence: US)
  Receive Date: 20161116
  Receipt Date: 20161116
  Transmission Date: 20170207
  Serious: No
  Sender: FDA-Public Use
  Company Number: US-JNJFOC-20161009868

PATIENT
  Age: 6 Decade
  Sex: Female
  Weight: 68.49 kg

DRUGS (2)
  1. MENS ROGAINE EXTRA STRENGTH [Suspect]
     Active Substance: MINOXIDIL
     Route: 061
  2. MENS ROGAINE EXTRA STRENGTH [Suspect]
     Active Substance: MINOXIDIL
     Indication: ALOPECIA
     Route: 061

REACTIONS (7)
  - Skin exfoliation [Not Recovered/Not Resolved]
  - Product use issue [Unknown]
  - Product expiration date issue [Unknown]
  - Overdose [Not Recovered/Not Resolved]
  - Pruritus [Not Recovered/Not Resolved]
  - Product lot number issue [Unknown]
  - Intentional product misuse [Unknown]
